FAERS Safety Report 7611224-4 (Version None)
Quarter: 2011Q3

REPORT INFORMATION
  Report Type: 
  Country: None (occurrence: None)
  Receive Date: 20110707
  Receipt Date: 20110628
  Transmission Date: 20111222
  Serious: Yes (Death)
  Sender: FDA-Public Use
  Company Number: JPI-P-015278

PATIENT
  Age: 34 Year
  Sex: Female

DRUGS (13)
  1. MIRTAZAPINE [Concomitant]
  2. HYDROMORPHONE HCL [Concomitant]
  3. ARIPIPRAZOLE [Concomitant]
  4. BACLOFEN [Concomitant]
  5. XYREM [Suspect]
     Indication: NARCOLEPSY
     Dosage: 4.5 GM (2.25 GM, 2 IN 1 D), ORAL; (TITRATING DOSE), ORAL; 9 GM (4.5 GM, 2 IN 1 D), ORAL
     Route: 048
     Dates: start: 20110101, end: 20110101
  6. XYREM [Suspect]
     Indication: NARCOLEPSY
     Dosage: 4.5 GM (2.25 GM, 2 IN 1 D), ORAL; (TITRATING DOSE), ORAL; 9 GM (4.5 GM, 2 IN 1 D), ORAL
     Route: 048
     Dates: start: 20110118, end: 20110101
  7. XYREM [Suspect]
     Indication: NARCOLEPSY
     Dosage: 4.5 GM (2.25 GM, 2 IN 1 D), ORAL; (TITRATING DOSE), ORAL; 9 GM (4.5 GM, 2 IN 1 D), ORAL
     Route: 048
     Dates: start: 20110101
  8. FOLIC ACID [Concomitant]
  9. CLORAZEPATE DIPOTASSIUM [Concomitant]
  10. ALENDRONATE SODIUM [Concomitant]
  11. OMEPRAZPLE [Concomitant]
  12. LEVOTHYROXINE SODIUM [Concomitant]
  13. METOPROLOL SUCCINATE [Concomitant]

REACTIONS (2)
  - ASPIRATION [None]
  - DIARRHOEA [None]
